FAERS Safety Report 14818627 (Version 2)
Quarter: 2019Q4

REPORT INFORMATION
  Report Type: Spontaneous
  Country: GB (occurrence: GB)
  Receive Date: 20180427
  Receipt Date: 20191209
  Transmission Date: 20200122
  Serious: Yes (Other)
  Sender: FDA-Public Use
  Company Number: GB-ROCHE-2115738

PATIENT
  Age: 48 Year
  Sex: Male

DRUGS (1)
  1. RANIBIZUMAB. [Suspect]
     Active Substance: RANIBIZUMAB
     Indication: DIABETIC RETINAL OEDEMA
     Dosage: OVER A 12-MONTH PERIOD
     Route: 031

REACTIONS (2)
  - Retinopathy proliferative [Unknown]
  - Retinal neovascularisation [Unknown]

NARRATIVE: CASE EVENT DATE: 2013
